FAERS Safety Report 25414864 (Version 1)
Quarter: 2025Q2

REPORT INFORMATION
  Report Type: Spontaneous
  Country: US (occurrence: US)
  Receive Date: 20250609
  Receipt Date: 20250609
  Transmission Date: 20250717
  Serious: Yes (Other)
  Sender: GENMAB
  Company Number: US-GENMAB-2025-00596

PATIENT
  Age: 63 Year
  Sex: Male

DRUGS (1)
  1. EPCORITAMAB [Suspect]
     Active Substance: EPCORITAMAB
     Indication: High grade B-cell lymphoma refractory
     Route: 065

REACTIONS (1)
  - Cytokine release syndrome [Unknown]
